FAERS Safety Report 24279592 (Version 1)
Quarter: 2024Q3

REPORT INFORMATION
  Report Type: Spontaneous
  Country: US (occurrence: US)
  Receive Date: 20240904
  Receipt Date: 20240904
  Transmission Date: 20241017
  Serious: No
  Sender: TAKEDA
  Company Number: US-TAKEDA-2024TUS087328

PATIENT
  Sex: Female
  Weight: 82 kg

DRUGS (1)
  1. VYVANSE [Suspect]
     Active Substance: LISDEXAMFETAMINE DIMESYLATE
     Indication: Attention deficit hyperactivity disorder
     Dosage: 20 MILLIGRAM, QD
     Route: 065

REACTIONS (4)
  - Loss of personal independence in daily activities [Unknown]
  - Product use issue [Unknown]
  - Insurance issue [Unknown]
  - Agitation [Unknown]
